FAERS Safety Report 13442530 (Version 1)
Quarter: 2017Q2

REPORT INFORMATION
  Report Type: Spontaneous
  Country: US (occurrence: US)
  Receive Date: 20170413
  Receipt Date: 20170413
  Transmission Date: 20170830
  Serious: Yes (Hospitalization)
  Sender: FDA-Public Use
  Company Number: None

PATIENT
  Age: 52 Year
  Sex: Female
  Weight: 87.75 kg

DRUGS (1)
  1. YERVOY [Suspect]
     Active Substance: IPILIMUMAB
     Indication: MALIGNANT MELANOMA
     Dosage: ?          OTHER FREQUENCY:EVERY 21 DAYS;?
     Route: 041
     Dates: start: 20170120, end: 20170209

REACTIONS (6)
  - Diarrhoea haemorrhagic [None]
  - Vomiting [None]
  - Pyrexia [None]
  - Nausea [None]
  - Colitis [None]
  - Abdominal pain [None]

NARRATIVE: CASE EVENT DATE: 20170221
